FAERS Safety Report 25424037 (Version 1)
Quarter: 2025Q2

REPORT INFORMATION
  Report Type: Spontaneous
  Country: TH (occurrence: TH)
  Receive Date: 20250611
  Receipt Date: 20250611
  Transmission Date: 20250716
  Serious: Yes (Death)
  Sender: PFIZER
  Company Number: TH-PFIZER INC-PV202500070127

PATIENT
  Age: 53 Year
  Sex: Female

DRUGS (2)
  1. IBRANCE [Suspect]
     Active Substance: PALBOCICLIB
     Indication: Breast cancer
     Route: 048
     Dates: start: 20200806
  2. FULVESTRANT [Concomitant]
     Active Substance: FULVESTRANT

REACTIONS (1)
  - Death [Fatal]
